FAERS Safety Report 7496754-0 (Version None)
Quarter: 2011Q2

REPORT INFORMATION
  Report Type: 
  Country: None (occurrence: None)
  Receive Date: 20110523
  Receipt Date: 20110217
  Transmission Date: 20111010
  Serious: Yes (Death, Life-Threatening)
  Sender: FDA-Public Use
  Company Number: B0702216A

PATIENT
  Age: 77 Year
  Sex: Female

DRUGS (21)
  1. LETROX [Concomitant]
     Indication: HYPOTHYROIDISM
     Route: 048
  2. GODASAL [Concomitant]
     Indication: THROMBOSIS PROPHYLAXIS
     Dates: start: 20080716
  3. GANATON [Concomitant]
     Indication: CONSTIPATION
     Route: 048
     Dates: start: 20080910
  4. ZOLPIDEM [Concomitant]
     Indication: INSOMNIA
     Route: 048
     Dates: start: 20080929
  5. EUPHYLLIN [Concomitant]
     Indication: CHRONIC OBSTRUCTIVE PULMONARY DISEASE
     Route: 048
  6. ZOMETA [Concomitant]
     Route: 048
     Dates: start: 20080101, end: 20100217
  7. OMEPRAZOLE [Concomitant]
     Indication: PROPHYLAXIS
     Route: 048
     Dates: start: 20050501
  8. UNKNOWN DRUG [Concomitant]
     Route: 048
     Dates: start: 20080901
  9. ARANESP [Concomitant]
     Route: 058
     Dates: start: 20091224
  10. MELPHALAN HYDROCHLORIDE [Suspect]
     Indication: MULTIPLE MYELOMA
     Route: 065
     Dates: start: 20080709, end: 20090221
  11. PREDNISONE [Suspect]
     Indication: MULTIPLE MYELOMA
     Route: 065
     Dates: start: 20080709, end: 20090221
  12. PLACEBO [Suspect]
     Indication: MULTIPLE MYELOMA
     Route: 048
     Dates: start: 20080709, end: 20091115
  13. TRITACE [Concomitant]
     Route: 048
     Dates: start: 20080723
  14. SERETIDE [Concomitant]
     Indication: CHRONIC OBSTRUCTIVE PULMONARY DISEASE
     Route: 055
     Dates: start: 20050101
  15. NIMESULIDE [Concomitant]
     Indication: BONE PAIN
     Route: 048
     Dates: start: 20080609
  16. DIGOXIN [Concomitant]
     Route: 048
     Dates: start: 19750101
  17. NEUPOGEN [Concomitant]
     Indication: NEUTROPENIA
     Route: 058
     Dates: start: 20080312
  18. LENALIDOMIDE [Suspect]
     Indication: MULTIPLE MYELOMA
     Route: 048
     Dates: start: 20091125, end: 20100112
  19. UNKNOWN DRUG [Concomitant]
     Indication: CONSTIPATION
     Route: 048
     Dates: start: 20081006
  20. BETALOC [Concomitant]
     Route: 048
     Dates: start: 20040101
  21. UNKNOWN DRUG [Concomitant]
     Route: 048
     Dates: start: 20080910

REACTIONS (2)
  - MYELODYSPLASTIC SYNDROME [None]
  - SEPSIS [None]
